FAERS Safety Report 7701786-0 (Version None)
Quarter: 2011Q3

REPORT INFORMATION
  Report Type: 
  Country: None (occurrence: None)
  Receive Date: 20110822
  Receipt Date: 20110816
  Transmission Date: 20111222
  Serious: Yes (Hospitalization, Other)
  Sender: FDA-Public Use
  Company Number: US-PFIZER INC-2011119875

PATIENT
  Age: 68 Year
  Sex: Female

DRUGS (1)
  1. AMIODARONE HCL [Suspect]
     Dosage: UNK

REACTIONS (3)
  - BLOOD PRESSURE ABNORMAL [None]
  - HYPOTHYROIDISM [None]
  - HEART RATE ABNORMAL [None]
